FAERS Safety Report 10576401 (Version 1)
Quarter: 2014Q4

REPORT INFORMATION
  Report Type: Spontaneous
  Country: AU (occurrence: None)
  Receive Date: 20141107
  Receipt Date: 20141107
  Transmission Date: 20150529
  Serious: Yes (Hospitalization)
  Sender: FDA-Public Use
  Company Number: 2014-20646

PATIENT
  Sex: Female

DRUGS (1)
  1. VEGF TRAP-EYE [Suspect]
     Active Substance: AFLIBERCEPT
     Indication: POLYPOIDAL CHOROIDAL VASCULOPATHY
     Route: 031
     Dates: start: 20140923, end: 20141027

REACTIONS (1)
  - Animal bite [None]

NARRATIVE: CASE EVENT DATE: 20141022
